FAERS Safety Report 4444528-7 (Version None)
Quarter: 2004Q3

REPORT INFORMATION
  Report Type: 
  Country: None (occurrence: None)
  Receive Date: 20040902
  Receipt Date: 20040824
  Transmission Date: 20050211
  Serious: Yes (Life-Threatening)
  Sender: FDA-Public Use
  Company Number: HQWYE514724AUG04

PATIENT
  Age: 35 Year
  Sex: Female
  Weight: 80 kg

DRUGS (4)
  1. OVRAL-28 [Suspect]
     Indication: CONTRACEPTION
     Dosage: ORAL
     Route: 048
     Dates: start: 19860101
  2. PREVACID [Suspect]
     Indication: ABDOMINAL PAIN UPPER
     Dosage: 30MG, ORAL
     Route: 048
     Dates: end: 20040621
  3. PREVACID [Suspect]
     Indication: DYSPEPSIA
     Dosage: 30MG, ORAL
     Route: 048
     Dates: end: 20040621
  4. ATIVAN [Concomitant]

REACTIONS (4)
  - AUTOIMMUNE HEPATITIS [None]
  - HEPATITIS CHOLESTATIC [None]
  - HEPATOTOXICITY [None]
  - PANCREATIC DISORDER [None]
